FAERS Safety Report 5450726-6 (Version None)
Quarter: 2007Q3

REPORT INFORMATION
  Report Type: 
  Country: None (occurrence: None)
  Receive Date: 20070911
  Receipt Date: 20070829
  Transmission Date: 20080115
  Serious: Yes (Hospitalization)
  Sender: FDA-Public Use
  Company Number: 2007S1008125

PATIENT
  Age: 50 Year
  Sex: Female

DRUGS (1)
  1. LEVOTHYROXINE SODIUM [Suspect]
     Indication: HYPOTHYROIDISM
     Dosage: 50 UG; X1; ORAL
     Route: 048
     Dates: start: 20070401, end: 20070401

REACTIONS (5)
  - ERUCTATION [None]
  - FLATULENCE [None]
  - PHARYNGEAL OEDEMA [None]
  - PRURITUS [None]
  - URTICARIA [None]
